FAERS Safety Report 10307915 (Version 3)
Quarter: 2016Q1

REPORT INFORMATION
  Report Type: Spontaneous
  Country: US (occurrence: US)
  Receive Date: 20140711
  Receipt Date: 20160325
  Transmission Date: 20160525
  Serious: Yes (Hospitalization, Other)
  Sender: FDA-Public Use
  Company Number: US-H14001-14-00086

PATIENT
  Sex: Male
  Weight: 136.2 kg

DRUGS (2)
  1. TESTOSTERONE ENANTHATE. [Suspect]
     Active Substance: TESTOSTERONE ENANTHATE
     Indication: BLOOD TESTOSTERONE DECREASED
     Route: 030
     Dates: start: 201401, end: 201406
  2. BENICAR [Concomitant]
     Active Substance: OLMESARTAN MEDOXOMIL
     Indication: BLOOD PRESSURE MEASUREMENT
     Route: 065

REACTIONS (12)
  - Platelet count increased [Not Recovered/Not Resolved]
  - Hyperaesthesia [Recovered/Resolved]
  - Nipple swelling [Recovering/Resolving]
  - Red blood cell count increased [Unknown]
  - Varicose vein [Not Recovered/Not Resolved]
  - Pain [Not Recovered/Not Resolved]
  - Drug withdrawal syndrome [Not Recovered/Not Resolved]
  - Muscle tone disorder [Unknown]
  - Loss of consciousness [Recovered/Resolved]
  - Cardiac disorder [Unknown]
  - Muscle spasms [Not Recovered/Not Resolved]
  - Cerebrovascular accident [Unknown]

NARRATIVE: CASE EVENT DATE: 2014
